FAERS Safety Report 5571648-6 (Version None)
Quarter: 2007Q4

REPORT INFORMATION
  Report Type: 
  Country: None (occurrence: None)
  Receive Date: 20071221
  Receipt Date: 20071017
  Transmission Date: 20080405
  Serious: No
  Sender: FDA-Public Use
  Company Number: US-BRISTOL-MYERS SQUIBB COMPANY-13945399

PATIENT
  Age: 23 Year
  Sex: Male
  Weight: 52 kg

DRUGS (9)
  1. SPRYCEL [Suspect]
     Indication: ACUTE LYMPHOCYTIC LEUKAEMIA
     Route: 048
     Dates: start: 20071016
  2. LEXAPRO [Concomitant]
  3. PROTONIX [Concomitant]
  4. MAGNESIUM [Concomitant]
  5. ATIVAN [Concomitant]
  6. BEXTRA [Concomitant]
  7. ACYCLOVIR [Concomitant]
  8. OXYCODONE HCL [Concomitant]
  9. TACROLIMUS [Concomitant]

REACTIONS (6)
  - DYSTONIA [None]
  - HYPERCHLORAEMIA [None]
  - HYPERNATRAEMIA [None]
  - MYALGIA [None]
  - NAUSEA [None]
  - VOMITING [None]
